FAERS Safety Report 8811836 (Version 1)
Quarter: 2012Q4

REPORT INFORMATION
  Report Type: 
  Country: GB (occurrence: GB)
  Receive Date: 20120927
  Receipt Date: 20120927
  Transmission Date: 20130627
  Serious: Yes (Other)
  Sender: FDA-Public Use
  Company Number: GB-GLAXOSMITHKLINE-B0831640A

PATIENT
  Age: 70 Year
  Sex: Female
  Weight: 62 kg

DRUGS (1)
  1. SERETIDE [Suspect]
     Indication: BRONCHIECTASIS
     Route: 055
     Dates: start: 20111106, end: 20120906

REACTIONS (2)
  - Mycobacterium avium complex infection [Unknown]
  - Pseudomonas infection [Unknown]
